FAERS Safety Report 10934923 (Version 1)
Quarter: 2015Q1

REPORT INFORMATION
  Report Type: Spontaneous
  Country: US (occurrence: None)
  Receive Date: 20150129
  Receipt Date: 20150129
  Transmission Date: 20150721
  Serious: No
  Sender: FDA-Public Use
  Company Number: A-NJ2014-103980

PATIENT
  Age: 80 Year
  Sex: Female

DRUGS (10)
  1. RAPAFLO [Concomitant]
     Active Substance: SILODOSIN
  2. VITAMIN D (ERGOCALCIFEROL) [Concomitant]
     Active Substance: ERGOCALCIFEROL
  3. VESICARE [Concomitant]
     Active Substance: SOLIFENACIN SUCCINATE
  4. ATENOLOL. [Concomitant]
     Active Substance: ATENOLOL
  5. OPSUMIT [Suspect]
     Active Substance: MACITENTAN
     Indication: PULMONARY HYPERTENSION
     Route: 048
     Dates: start: 20140609
  6. SINEMET [Concomitant]
     Active Substance: CARBIDOPA\LEVODOPA
  7. OXYBUTYNIN [Concomitant]
     Active Substance: OXYBUTYNIN
  8. WARFARIN [Concomitant]
     Active Substance: WARFARIN
  9. VITAMIN B (VITAMIN B COMPLEX) [Concomitant]
  10. EFFEXOR [Concomitant]
     Active Substance: VENLAFAXINE HYDROCHLORIDE

REACTIONS (1)
  - Diarrhoea [None]

NARRATIVE: CASE EVENT DATE: 20140610
